FAERS Safety Report 21988461 (Version 1)
Quarter: 2023Q1

REPORT INFORMATION
  Report Type: Report from Study
  Country: BR (occurrence: BR)
  Receive Date: 20230214
  Receipt Date: 20230214
  Transmission Date: 20230418
  Serious: Yes (Hospitalization, Other)
  Sender: FDA-Public Use
  Company Number: BR-BIOGEN-2023BI01186960

PATIENT
  Sex: Female
  Weight: 35 kg

DRUGS (4)
  1. TYSABRI [Suspect]
     Active Substance: NATALIZUMAB
     Indication: Multiple sclerosis
     Route: 050
     Dates: start: 202101, end: 202301
  2. TYSABRI [Suspect]
     Active Substance: NATALIZUMAB
     Route: 050
     Dates: start: 20230123
  3. DULOXETINE [Concomitant]
     Active Substance: DULOXETINE
     Indication: Pain
     Route: 050
  4. BACLOFEN [Concomitant]
     Active Substance: BACLOFEN
     Indication: Muscle spasticity
     Dosage: 6 TABLETS A DAY
     Route: 050

REACTIONS (4)
  - Dermal cyst [Recovered/Resolved]
  - Ovarian germ cell teratoma [Not Recovered/Not Resolved]
  - Abdominal distension [Not Recovered/Not Resolved]
  - Pain [Not Recovered/Not Resolved]
